FAERS Safety Report 5530103-X (Version None)
Quarter: 2007Q4

REPORT INFORMATION
  Report Type: 
  Country: None (occurrence: None)
  Receive Date: 20071130
  Receipt Date: 20071122
  Transmission Date: 20080405
  Serious: Yes (Other)
  Sender: FDA-Public Use
  Company Number: PHBS2007ES19780

PATIENT
  Age: 53 Year
  Sex: Male

DRUGS (3)
  1. ZOLEDRONIC ACID [Suspect]
     Indication: METASTASES TO BONE
     Dosage: 4 MG/MONTH
     Route: 042
  2. IRINOTECAN HCL [Concomitant]
  3. ERLOTINIB [Concomitant]
     Dosage: 150 MG/DAY

REACTIONS (13)
  - BONE DEBRIDEMENT [None]
  - BONE EROSION [None]
  - DYSPHAGIA [None]
  - IMPAIRED HEALING [None]
  - MASS [None]
  - OSTEONECROSIS [None]
  - PAIN IN JAW [None]
  - PERIODONTAL DISEASE [None]
  - PRIMARY SEQUESTRUM [None]
  - SKIN REACTION [None]
  - SURGERY [None]
  - TOOTH DISORDER [None]
  - TOOTH EXTRACTION [None]
